FAERS Safety Report 4971172-5 (Version None)
Quarter: 2006Q1

REPORT INFORMATION
  Report Type: 
  Country: None (occurrence: None)
  Receive Date: 20060222
  Receipt Date: 20060201
  Transmission Date: 20060701
  Serious: Yes (Hospitalization)
  Sender: FDA-Public Use
  Company Number: HQWYE630002FEB06

PATIENT
  Age: 33 Year
  Sex: Male

DRUGS (1)
  1. PROTONIX [Suspect]
     Indication: HIATUS HERNIA
     Dosage: 40-80 MG DAILY, ORAL
     Route: 048
     Dates: start: 20050101

REACTIONS (1)
  - PANCREATITIS [None]
